FAERS Safety Report 10994763 (Version 1)
Quarter: 2015Q2

REPORT INFORMATION
  Report Type: Spontaneous
  Country: US (occurrence: US)
  Receive Date: 20150407
  Receipt Date: 20150407
  Transmission Date: 20150821
  Serious: Yes (Disabling, Other)
  Sender: FDA-Public Use
  Company Number: US-ASTRAZENECA-2015SE30931

PATIENT
  Age: 959 Month
  Sex: Female
  Weight: 81.6 kg

DRUGS (10)
  1. LETROZOLE. [Concomitant]
     Active Substance: LETROZOLE
     Indication: ANTIOESTROGEN THERAPY
     Route: 048
     Dates: start: 2014
  2. TUMS [Concomitant]
     Active Substance: CALCIUM CARBONATE
     Indication: GASTROOESOPHAGEAL REFLUX DISEASE
     Route: 048
  3. WARFARIN [Concomitant]
     Active Substance: WARFARIN
     Indication: ANTICOAGULANT THERAPY
     Dosage: 6 MG ON TUESDAY, THURSDAY, SATURDAY AND SUNDAY
     Route: 048
     Dates: start: 2010
  4. FASLODEX [Suspect]
     Active Substance: FULVESTRANT
     Indication: BONE CANCER METASTATIC
     Dosage: MONTHLY
     Route: 030
     Dates: start: 2014
  5. MS CONTIN [Concomitant]
     Active Substance: MORPHINE SULFATE
     Indication: PAIN
     Route: 048
     Dates: start: 2014
  6. WARFARIN [Concomitant]
     Active Substance: WARFARIN
     Indication: ANTICOAGULANT THERAPY
     Dosage: 5 MG ON MONDAY, WEDNESDAY AND FRIDAY
     Route: 048
     Dates: start: 2010
  7. TYLENOL [Concomitant]
     Active Substance: ACETAMINOPHEN
     Indication: MIGRAINE
     Route: 048
     Dates: start: 2014
  8. SENNA [Concomitant]
     Active Substance: SENNA LEAF\SENNOSIDES\SENNOSIDES A AND B
     Indication: CONSTIPATION
     Dosage: 1 PILL AT MORNING AND ONE TO TWO AT NIGHT
     Route: 048
     Dates: start: 2014
  9. XGEVA [Concomitant]
     Active Substance: DENOSUMAB
     Indication: BONE CANCER METASTATIC
     Dosage: MONTHLY
     Route: 030
     Dates: start: 2014
  10. CALCIUM WITH VITAMIN D3 [Concomitant]
     Active Substance: CALCIUM CARBONATE\CHOLECALCIFEROL
     Indication: BONE DISORDER
     Route: 048
     Dates: start: 2014

REACTIONS (7)
  - Injection site infection [Unknown]
  - Injection site erythema [Unknown]
  - Activities of daily living impaired [Unknown]
  - Blindness unilateral [Unknown]
  - Visual impairment [Unknown]
  - Injection site mass [Unknown]
  - Migraine [Unknown]

NARRATIVE: CASE EVENT DATE: 201502
